FAERS Safety Report 21833157 (Version 1)
Quarter: 2023Q1

REPORT INFORMATION
  Report Type: Spontaneous
  Country: CN (occurrence: CN)
  Receive Date: 20230106
  Receipt Date: 20230106
  Transmission Date: 20230417
  Serious: Yes (Other)
  Sender: FDA-Public Use
  Company Number: CN-009507513-2212CHN010147

PATIENT
  Age: 48 Year
  Sex: Male

DRUGS (3)
  1. TEMOZOLOMIDE [Suspect]
     Active Substance: TEMOZOLOMIDE
     Indication: Glioblastoma
     Dosage: 3 CYCLES
     Route: 048
     Dates: start: 2015
  2. TEMOZOLOMIDE [Suspect]
     Active Substance: TEMOZOLOMIDE
     Dosage: 6 CYCLES
     Route: 048
     Dates: start: 2016
  3. APATINIB [Suspect]
     Active Substance: APATINIB
     Indication: Glioblastoma
     Dosage: 6 CYCLE

REACTIONS (4)
  - Tumour pseudoprogression [Recovered/Resolved]
  - Hypertension [Unknown]
  - Palmar-plantar erythrodysaesthesia syndrome [Unknown]
  - Adverse drug reaction [Unknown]

NARRATIVE: CASE EVENT DATE: 20160101
